FAERS Safety Report 10755150 (Version 1)
Quarter: 2015Q1

REPORT INFORMATION
  Report Type: Spontaneous
  Country: US (occurrence: None)
  Receive Date: 20150130
  Receipt Date: 20150130
  Transmission Date: 20150721
  Serious: No
  Sender: FDA-Public Use
  Company Number: None

PATIENT
  Sex: Female

DRUGS (15)
  1. MICROLET COLORED LANCETS [Concomitant]
  2. METFORMIN [Concomitant]
     Active Substance: METFORMIN HYDROCHLORIDE
  3. FISH OIL [Concomitant]
     Active Substance: FISH OIL
  4. PEGASYS [Concomitant]
     Active Substance: PEGINTERFERON ALFA-2A
  5. CONTOUR NEXT TEST STRIPS [Concomitant]
  6. CHONDROITIN SULFATE (BOVINE)\GLUCOSAMINE SULFATE [Concomitant]
     Active Substance: CHONDROITIN SULFATE (BOVINE)\GLUCOSAMINE SULFATE
  7. FIN FISH OIL X/S ENT CD [Concomitant]
  8. CALCIUM [Concomitant]
     Active Substance: CALCIUM
  9. FLUVIRIN MULTIDOSE VIAL [Concomitant]
  10. ATORVASTATIN [Concomitant]
     Active Substance: ATORVASTATIN
  11. RIBAVIRIN. [Concomitant]
     Active Substance: RIBAVIRIN
  12. DESONIDE. [Concomitant]
     Active Substance: DESONIDE
  13. INCIVEK [Concomitant]
     Active Substance: TELAPREVIR
  14. HARVONI [Suspect]
     Active Substance: LEDIPASVIR\SOFOSBUVIR
     Indication: HEPATITIS C
     Route: 048
     Dates: start: 20150107
  15. VITAMIN D [Concomitant]
     Active Substance: CHOLECALCIFEROL

REACTIONS (2)
  - Constipation [None]
  - Headache [None]
